FAERS Safety Report 14070353 (Version 1)
Quarter: 2017Q4

REPORT INFORMATION
  Report Type: Spontaneous
  Country: GB (occurrence: GB)
  Receive Date: 20171010
  Receipt Date: 20171010
  Transmission Date: 20180321
  Serious: Yes (Hospitalization)
  Sender: FDA-Public Use
  Company Number: GB-TEVA-812016ACC

PATIENT
  Age: 90 Year
  Sex: Male

DRUGS (13)
  1. SANDOZ LTD DORZOLAMIDE AND TIMOLOL [Concomitant]
  2. MIRTAZAPINE HYDROCHLORIDE [Suspect]
     Active Substance: MIRTAZAPINE
     Indication: AGITATED DEPRESSION
     Dosage: 15 MILLIGRAM DAILY;
     Route: 048
     Dates: start: 20170905, end: 20170909
  3. FINASTERIDE. [Concomitant]
     Active Substance: FINASTERIDE
  4. OMEPRAZOLE SODIUM [Concomitant]
     Active Substance: OMEPRAZOLE SODIUM
  5. TRAZODONE [Concomitant]
     Active Substance: TRAZODONE HYDROCHLORIDE
     Dates: end: 20170904
  6. NICORANDIL [Concomitant]
     Active Substance: NICORANDIL
  7. DEXCEL-PHARMA ISOSORBIDE MONONITRATE [Concomitant]
  8. LORAZEPAM. [Concomitant]
     Active Substance: LORAZEPAM
  9. TRIMETHOPRIM. [Concomitant]
     Active Substance: TRIMETHOPRIM
  10. MIRTAZAPINE HYDROCHLORIDE [Suspect]
     Active Substance: MIRTAZAPINE
     Indication: AGITATED DEPRESSION
     Dosage: 30 MILLIGRAM DAILY;
     Route: 048
     Dates: start: 20170909, end: 20170915
  11. ATORVASTATIN CALCIUM. [Concomitant]
     Active Substance: ATORVASTATIN CALCIUM
  12. POTASSIUM CHLORIDE. [Concomitant]
     Active Substance: POTASSIUM CHLORIDE
  13. FUROSEMIDE. [Concomitant]
     Active Substance: FUROSEMIDE

REACTIONS (3)
  - Acute kidney injury [Unknown]
  - Urinary retention [Recovering/Resolving]
  - Suprapubic pain [Unknown]

NARRATIVE: CASE EVENT DATE: 201709
